FAERS Safety Report 24371856 (Version 1)
Quarter: 2024Q3

REPORT INFORMATION
  Report Type: Spontaneous
  Country: RU (occurrence: RU)
  Receive Date: 20240927
  Receipt Date: 20240927
  Transmission Date: 20241016
  Serious: Yes (Other)
  Sender: BAYER
  Company Number: None

PATIENT
  Age: 2 Month
  Sex: Male
  Weight: 6 kg

DRUGS (1)
  1. ULTRAVIST [Suspect]
     Active Substance: IOPROMIDE
     Indication: Urogram
     Dosage: 17 ML, ONCE
     Route: 041
     Dates: start: 20240920, end: 20240920

REACTIONS (1)
  - Pallor [Recovered/Resolved]

NARRATIVE: CASE EVENT DATE: 20240920
